FAERS Safety Report 9052543 (Version 2)
Quarter: 2013Q1

REPORT INFORMATION
  Report Type: Spontaneous
  Country: JP (occurrence: JP)
  Receive Date: 20130207
  Receipt Date: 20130218
  Transmission Date: 20140127
  Serious: Yes (Other)
  Sender: FDA-Public Use
  Company Number: PHHY2013JP011598

PATIENT
  Age: 60 Year
  Sex: Female

DRUGS (5)
  1. STARSIS [Suspect]
     Indication: DIABETES MELLITUS
     Dosage: 90 MG
     Route: 048
     Dates: start: 200812
  2. METGLUCO [Concomitant]
     Dosage: 750 MG
     Dates: start: 200812
  3. LIVALO [Concomitant]
     Dosage: 1 MG
     Dates: start: 201105
  4. FAMOTIDINE DCI [Concomitant]
     Dosage: 10 MG
     Dates: start: 201301
  5. REBAMIPIDE [Concomitant]
     Dosage: 100 MG
     Dates: start: 201301

REACTIONS (1)
  - Lipoma [Unknown]
